FAERS Safety Report 15798177 (Version 1)
Quarter: 2019Q1

REPORT INFORMATION
  Report Type: Spontaneous
  Country: CN (occurrence: CN)
  Receive Date: 20190108
  Receipt Date: 20190108
  Transmission Date: 20190417
  Serious: Yes (Hospitalization)
  Sender: FDA-Public Use
  Company Number: CN-ASTRAZENECA-2019SE01899

PATIENT
  Sex: Female
  Weight: 62 kg

DRUGS (1)
  1. GEFITINIB. [Suspect]
     Active Substance: GEFITINIB
     Indication: TARGETED CANCER THERAPY
     Route: 048
     Dates: start: 20180820, end: 20180827

REACTIONS (1)
  - Bone marrow failure [Recovered/Resolved]
